FAERS Safety Report 9220215 (Version 4)
Quarter: 2013Q2

REPORT INFORMATION
  Report Type: Spontaneous
  Country: JP (occurrence: None)
  Receive Date: 20130405
  Receipt Date: 20130620
  Transmission Date: 20140414
  Serious: Yes (Life-Threatening, Hospitalization)
  Sender: FDA-Public Use
  Company Number: DSJ-2013-06074

PATIENT
  Age: 74 Year
  Sex: Male
  Weight: 54 kg

DRUGS (9)
  1. OLMETEC [Suspect]
     Indication: HYPERTENSION
     Route: 048
     Dates: start: 20080531, end: 20130216
  2. CALBLOCK [Suspect]
     Indication: PRODUCT USED FOR UNKNOWN INDICATION
     Route: 048
     Dates: start: 20081220, end: 20130216
  3. CALBLOCK [Suspect]
     Indication: HYPERTENSION
     Route: 048
     Dates: start: 20081220, end: 20130216
  4. PREDONINE (PREDNISOLONE) (PREDNISOLONE) [Concomitant]
  5. ELASPOL (SILVELESTAT) (SIVELESTAT) [Concomitant]
  6. CRAVIT (LEVOFLOXACIN) (LEVOFLOXACIN) [Concomitant]
  7. BAKTAR (SULFAMETHOXAZOLE, TRIMETHOPRIM) (SULFAMETHOXAZOLE, TIRMETHOPRIM) [Concomitant]
  8. FUNGUARD (MICAFUNGIN SODIUM) (MICAFUNGIN SODIUM) [Concomitant]
  9. LASIX (FUROSEMIDE) (FUROSEMIDE) [Concomitant]

REACTIONS (5)
  - Pulmonary oedema [None]
  - Hypotension [None]
  - Aortic valve stenosis [None]
  - Mitral valve incompetence [None]
  - Pulmonary hypertension [None]
